FAERS Safety Report 22541611 (Version 1)
Quarter: 2023Q2

REPORT INFORMATION
  Report Type: Spontaneous
  Country: CA (occurrence: None)
  Receive Date: 20230608
  Receipt Date: 20230608
  Transmission Date: 20230721
  Serious: Yes (Disabling, Other)
  Sender: FDA-Public Use
  Company Number: None

PATIENT
  Age: 27 Year
  Sex: Male
  Weight: 81 kg

DRUGS (2)
  1. SUBOXONE [Suspect]
     Active Substance: BUPRENORPHINE HYDROCHLORIDE\NALOXONE HYDROCHLORIDE
     Indication: Drug use disorder
  2. SUBOXONE [Suspect]
     Active Substance: BUPRENORPHINE HYDROCHLORIDE\NALOXONE HYDROCHLORIDE
     Indication: Dependence

REACTIONS (2)
  - Tooth injury [None]
  - Tooth loss [None]

NARRATIVE: CASE EVENT DATE: 20210816
